FAERS Safety Report 8062032-4 (Version None)
Quarter: 2012Q1

REPORT INFORMATION
  Report Type: 
  Country: None (occurrence: None)
  Receive Date: 20120117
  Receipt Date: 20120103
  Transmission Date: 20120608
  Serious: Yes (Other)
  Sender: FDA-Public Use
  Company Number: 2012P1000448

PATIENT

DRUGS (1)
  1. FENTANYL CITRATE [Suspect]

REACTIONS (1)
  - SEROTONIN SYNDROME [None]
